FAERS Safety Report 19246427 (Version 1)
Quarter: 2021Q2

REPORT INFORMATION
  Report Type: Spontaneous
  Country: US (occurrence: US)
  Receive Date: 20210511
  Receipt Date: 20210511
  Transmission Date: 20210717
  Serious: No
  Sender: FDA-Public Use
  Company Number: None

PATIENT
  Age: 39 Year
  Sex: Female
  Weight: 59.4 kg

DRUGS (7)
  1. SYNTHROID [Concomitant]
     Active Substance: LEVOTHYROXINE SODIUM
  2. QVAR [Concomitant]
     Active Substance: BECLOMETHASONE DIPROPIONATE
  3. PRENATELS [Concomitant]
  4. CLOMIPHENE CITRATE TABLET [Suspect]
     Active Substance: CLOMIPHENE CITRATE
     Indication: IN VITRO FERTILISATION
     Dosage: ?          QUANTITY:1 TABLET(S);?
     Route: 048
     Dates: start: 20210507, end: 20210508
  5. FLONASE [Concomitant]
     Active Substance: FLUTICASONE PROPIONATE
  6. CLARITIN [Concomitant]
     Active Substance: LORATADINE
  7. GONAL F INJECTION [Concomitant]

REACTIONS (1)
  - Visual impairment [None]

NARRATIVE: CASE EVENT DATE: 20210508
